FAERS Safety Report 16914811 (Version 1)
Quarter: 2019Q4

REPORT INFORMATION
  Report Type: Spontaneous
  Country: GB (occurrence: GB)
  Receive Date: 20191014
  Receipt Date: 20191014
  Transmission Date: 20200122
  Serious: Yes (Other)
  Sender: FDA-Public Use
  Company Number: GB-MYLANLABS-2019M1095315

PATIENT
  Age: 4 Year
  Sex: Male

DRUGS (4)
  1. CLENIL MODULITE [Concomitant]
     Active Substance: BECLOMETHASONE DIPROPIONATE
     Dosage: 100 MICROGRAM
  2. SALBUTAMOL [Concomitant]
     Active Substance: ALBUTEROL
     Dosage: UNK
  3. MONTELUKAST [Suspect]
     Active Substance: MONTELUKAST SODIUM
     Indication: ASTHMA
     Dosage: 4 MILLIGRAM, QD, AT NIGHT.
     Route: 048
     Dates: start: 20190122, end: 20190606
  4. PREDNISOLONE. [Concomitant]
     Active Substance: PREDNISOLONE
     Dosage: 10 MILLIGRAM
     Dates: start: 201903, end: 201903

REACTIONS (4)
  - Nightmare [Unknown]
  - Crying [Unknown]
  - Neuropsychiatric symptoms [Unknown]
  - Anger [Unknown]

NARRATIVE: CASE EVENT DATE: 20190219
